FAERS Safety Report 8019780-1 (Version None)
Quarter: 2012Q1

REPORT INFORMATION
  Report Type: 
  Country: None (occurrence: None)
  Receive Date: 20120103
  Receipt Date: 20111228
  Transmission Date: 20120608
  Serious: No
  Sender: FDA-Public Use
  Company Number: US-PFIZER INC-2011316148

PATIENT
  Sex: Female

DRUGS (3)
  1. PRISTIQ [Suspect]
     Dosage: 100 MG
     Dates: start: 20090101, end: 20110101
  2. PRISTIQ [Suspect]
     Dosage: 0.5/DAY
     Dates: start: 20111222, end: 20111223
  3. PRISTIQ [Suspect]
     Dosage: 0.25/DAY
     Dates: start: 20111224, end: 20111227

REACTIONS (3)
  - DRUG WITHDRAWAL SYNDROME [None]
  - NAUSEA [None]
  - DIZZINESS [None]
